FAERS Safety Report 6403140-0 (Version None)
Quarter: 2009Q4

REPORT INFORMATION
  Report Type: 
  Country: None (occurrence: None)
  Receive Date: 20091013
  Receipt Date: 20090930
  Transmission Date: 20100525
  Serious: Yes (Hospitalization)
  Sender: FDA-Public Use
  Company Number: 2009-00405

PATIENT
  Age: 62 Year
  Sex: Male
  Weight: 56 kg

DRUGS (5)
  1. VELCADE [Suspect]
     Indication: MULTIPLE MYELOMA
     Dosage: 1.3 MG/M2, NTRAVENOUS;  20 MG, INTRAVENOUS
     Route: 042
     Dates: start: 20070906, end: 20071102
  2. VELCADE [Suspect]
     Indication: MULTIPLE MYELOMA
     Dosage: 1.3 MG/M2, NTRAVENOUS;  20 MG, INTRAVENOUS
     Route: 042
     Dates: start: 20071102, end: 20071102
  3. DEXAMETHASONE TAB [Suspect]
     Indication: MULTIPLE MYELOMA
     Dosage: 40 MG, INTRAVENOUS
     Route: 042
     Dates: start: 20070906, end: 20071009
  4. FLUCONAZOLE [Concomitant]
  5. SULFAMETHOXAZOLE W/TRIMETHOPRIM (SULFAMETHOXAZOLE, TRIMETHOPRIM) [Concomitant]

REACTIONS (4)
  - CHEST DISCOMFORT [None]
  - HEPATITIS B [None]
  - HERPES ZOSTER DISSEMINATED [None]
  - RENAL FAILURE ACUTE [None]
